FAERS Safety Report 23664635 (Version 8)
Quarter: 2025Q4

REPORT INFORMATION
  Report Type: Spontaneous
  Country: US (occurrence: US)
  Receive Date: 20240322
  Receipt Date: 20251216
  Transmission Date: 20260118
  Serious: No
  Sender: VERTEX
  Company Number: US-VERTEX PHARMACEUTICALS-2024-004855

PATIENT

DRUGS (3)
  1. TRIKAFTA [Suspect]
     Active Substance: ELEXACAFTOR\IVACAFTOR\TEZACAFTOR
     Indication: Cystic fibrosis
     Dosage: UNKNOWN
     Route: 061
  2. TRIKAFTA [Suspect]
     Active Substance: ELEXACAFTOR\IVACAFTOR\TEZACAFTOR
     Dosage: NO BLUE PILLS
     Route: 061
  3. TRIKAFTA [Suspect]
     Active Substance: ELEXACAFTOR\IVACAFTOR\TEZACAFTOR
     Dosage: ONE ORANGE PILL AT NIGHT
     Route: 061

REACTIONS (6)
  - Affective disorder [Not Recovered/Not Resolved]
  - Attention deficit hyperactivity disorder [Recovering/Resolving]
  - Depression [Recovering/Resolving]
  - Blood glucose increased [Unknown]
  - Feeling abnormal [Recovering/Resolving]
  - Daydreaming [Recovering/Resolving]
